FAERS Safety Report 24142383 (Version 1)
Quarter: 2024Q3

REPORT INFORMATION
  Report Type: Spontaneous
  Country: FR (occurrence: FR)
  Receive Date: 20240726
  Receipt Date: 20240726
  Transmission Date: 20241016
  Serious: Yes (Hospitalization)
  Sender: MYLAN
  Company Number: None

PATIENT
  Age: 45 Year
  Sex: Female
  Weight: 54 kg

DRUGS (4)
  1. CELECOXIB [Suspect]
     Active Substance: CELECOXIB
     Indication: Iridocyclitis
     Dosage: 200 MILLIGRAM, QD
     Route: 048
     Dates: start: 20240604, end: 20240612
  2. DEXAMETHASONE SODIUM PHOSPHATE [Suspect]
     Active Substance: DEXAMETHASONE PHOSPHATE\DEXAMETHASONE SODIUM PHOSPHATE
     Indication: Iridocyclitis
     Dosage: 6 GTT DROPS, QD (DROP (1/12 MILLILITER))
     Route: 031
     Dates: start: 20240604, end: 20240612
  3. DEXAMETHASONE\OXYTETRACYCLINE [Suspect]
     Active Substance: DEXAMETHASONE\OXYTETRACYCLINE
     Indication: Iridocyclitis
     Dosage: 1 DOSAGE FORM, QD
     Route: 031
     Dates: start: 20240604, end: 20240612
  4. NEOSYNEPHRINE [Suspect]
     Active Substance: PHENYLEPHRINE HYDROCHLORIDE
     Indication: Iridocyclitis
     Dosage: 3 GTT DROPS, QD (DROP (1/12 MILLILITER))
     Route: 031
     Dates: start: 20240604, end: 20240612

REACTIONS (4)
  - Hyperthermia [Recovered/Resolved]
  - Hepatic enzyme increased [Recovering/Resolving]
  - Rash maculo-papular [Recovered/Resolved]
  - Face oedema [Recovered/Resolved]

NARRATIVE: CASE EVENT DATE: 20240611
